FAERS Safety Report 9682841 (Version 8)
Quarter: 2016Q1

REPORT INFORMATION
  Report Type: Report from Study
  Country: LB (occurrence: LB)
  Receive Date: 20131112
  Receipt Date: 20160215
  Transmission Date: 20160526
  Serious: Yes (Hospitalization, Other)
  Sender: FDA-Public Use
  Company Number: PHHY2012LB085255

PATIENT
  Age: 25 Year
  Sex: Female

DRUGS (4)
  1. TASIGNA [Suspect]
     Active Substance: NILOTINIB
     Indication: CHRONIC MYELOID LEUKAEMIA
     Dosage: 600 MG, QD
     Route: 048
     Dates: start: 201203, end: 201412
  2. PROFINAL [Concomitant]
     Indication: PRODUCT USED FOR UNKNOWN INDICATION
     Dosage: UNK UNK, PRN
     Route: 048
  3. LEXOTANIL [Concomitant]
     Active Substance: BROMAZEPAM
     Indication: PRODUCT USED FOR UNKNOWN INDICATION
     Dosage: UNK UNK, PRN
     Route: 048
     Dates: start: 201310
  4. LASIX [Concomitant]
     Active Substance: FUROSEMIDE
     Indication: PRODUCT USED FOR UNKNOWN INDICATION
     Dosage: 1 DF, PRN
     Route: 048

REACTIONS (16)
  - Headache [Recovering/Resolving]
  - Arthralgia [Recovering/Resolving]
  - Fatigue [Unknown]
  - Diarrhoea [Recovering/Resolving]
  - Swelling [Recovering/Resolving]
  - Insomnia [Not Recovered/Not Resolved]
  - Tachycardia [Recovering/Resolving]
  - Influenza [Recovering/Resolving]
  - Pain [Unknown]
  - Asthenia [Unknown]
  - Vomiting [Recovering/Resolving]
  - Muscle spasms [Not Recovered/Not Resolved]
  - Ovarian cyst [Recovered/Resolved]
  - Anxiety [Recovering/Resolving]
  - Weight increased [Not Recovered/Not Resolved]
  - Abdominal distension [Not Recovered/Not Resolved]

NARRATIVE: CASE EVENT DATE: 201211
